FAERS Safety Report 5162834-8 (Version None)
Quarter: 2006Q4

REPORT INFORMATION
  Report Type: 
  Country: None (occurrence: None)
  Receive Date: 20061201
  Receipt Date: 20010130
  Transmission Date: 20070319
  Serious: Yes (Hospitalization)
  Sender: FDA-Public Use
  Company Number: FR-GLAXOSMITHKLINE-B0098123B

PATIENT
  Age: 1 Day
  Sex: Male
  Weight: 3.3 kg

DRUGS (7)
  1. COMBIVIR [Suspect]
     Indication: HIV INFECTION
     Route: 048
  2. ZIDOVUDINE [Suspect]
     Indication: HUMAN IMMUNODEFICIENCY VIRUS TRANSMISSION
     Route: 042
     Dates: start: 20010116, end: 20010116
  3. DIDANOSINE [Suspect]
     Indication: HIV INFECTION
     Route: 048
  4. IRON SALT [Concomitant]
  5. MAXICAINE [Concomitant]
  6. OROCAL [Concomitant]
  7. RHINATHIOL [Concomitant]

REACTIONS (12)
  - AMINOACIDURIA [None]
  - AMMONIA INCREASED [None]
  - ANAEMIA [None]
  - BLOOD LACTIC ACID INCREASED [None]
  - CRYING [None]
  - HEPATOMEGALY [None]
  - HYPERTONIA [None]
  - HYPOCALCAEMIA [None]
  - HYPOGLYCAEMIA [None]
  - HYPOTONIA [None]
  - LACTIC ACIDOSIS [None]
  - SPLENOMEGALY [None]
